FAERS Safety Report 11163425 (Version 2)
Quarter: 2015Q4

REPORT INFORMATION
  Report Type: Report from Study
  Country: US (occurrence: US)
  Receive Date: 20150604
  Receipt Date: 20151007
  Transmission Date: 20160304
  Serious: No
  Sender: FDA-Public Use
  Company Number: US-AMGEN-USASL2015052682

PATIENT
  Age: 59 Year
  Sex: Female

DRUGS (2)
  1. ENBREL [Suspect]
     Active Substance: ETANERCEPT
     Indication: PSORIATIC ARTHROPATHY
     Dosage: 50 MG, QWK
     Route: 065
     Dates: start: 20141001
  2. ENBREL [Suspect]
     Active Substance: ETANERCEPT
     Dosage: UNK UNK, UNK
     Route: 065

REACTIONS (12)
  - Drug effect decreased [Unknown]
  - Liver function test abnormal [Recovering/Resolving]
  - Condition aggravated [Unknown]
  - Musculoskeletal stiffness [Unknown]
  - Peripheral swelling [Recovering/Resolving]
  - Injection site erythema [Not Recovered/Not Resolved]
  - Pain [Unknown]
  - Pain in extremity [Unknown]
  - Psoriasis [Unknown]
  - Arthritis [Unknown]
  - Asthenia [Unknown]
  - Sleep disorder [Unknown]

NARRATIVE: CASE EVENT DATE: 2015
